FAERS Safety Report 8029388-X (Version None)
Quarter: 2012Q1

REPORT INFORMATION
  Report Type: 
  Country: None (occurrence: None)
  Receive Date: 20120106
  Receipt Date: 20120103
  Transmission Date: 20120608
  Serious: Yes (Death)
  Sender: FDA-Public Use
  Company Number: FR-ROCHE-1026109

PATIENT
  Sex: Male
  Weight: 43 kg

DRUGS (8)
  1. LEVOTHYROXINE SODIUM [Concomitant]
  2. AMITRIPTYLINE HCL [Concomitant]
  3. INTERFERON ALFA [Suspect]
     Indication: MYCOSIS FUNGOIDES
     Dates: start: 20101101, end: 20111205
  4. EMEND [Suspect]
     Indication: VOMITING
     Dates: start: 20110901, end: 20111118
  5. DEXERYL (FRANCE) [Concomitant]
  6. LEXOMIL [Concomitant]
  7. TARGRETIN [Suspect]
     Indication: MYCOSIS FUNGOIDES
     Dates: start: 20091101, end: 20111205
  8. XERIAL (FRANCE) [Concomitant]
     Dosage: APPLY ON PALM AND SOLE

REACTIONS (1)
  - DEHYDRATION [None]
